FAERS Safety Report 10229614 (Version 1)
Quarter: 2014Q2

REPORT INFORMATION
  Report Type: Spontaneous
  Country: GR (occurrence: GR)
  Receive Date: 20140611
  Receipt Date: 20140611
  Transmission Date: 20141212
  Serious: Yes (Hospitalization, Other)
  Sender: FDA-Public Use
  Company Number: GR-ELI_LILLY_AND_COMPANY-GR201406001675

PATIENT
  Age: 51 Year
  Sex: Male

DRUGS (3)
  1. CECLOR [Suspect]
     Indication: PROPHYLAXIS
     Dosage: 750 MG, SINGLE
     Route: 048
  2. APROVEL [Concomitant]
     Dosage: 150 MG, QD
     Route: 048
  3. LOBIVON [Concomitant]
     Indication: HYPERTENSION
     Dosage: UNK
     Route: 048

REACTIONS (1)
  - Anaphylactic shock [Recovered/Resolved]
